FAERS Safety Report 6711845-7 (Version None)
Quarter: 2010Q2

REPORT INFORMATION
  Report Type: 
  Country: None (occurrence: None)
  Receive Date: 20100505
  Receipt Date: 20090417
  Transmission Date: 20101027
  Serious: Yes (Other)
  Sender: FDA-Public Use
  Company Number: BR-BAYER-200915374LA

PATIENT
  Age: 39 Year
  Sex: Female

DRUGS (2)
  1. BETAFERON [Suspect]
     Indication: MULTIPLE SCLEROSIS
     Route: 058
     Dates: start: 20000101
  2. MANTIDAN [Concomitant]
     Indication: FATIGUE
     Dosage: UNIT DOSE: 100 MG
     Route: 048
     Dates: start: 20020101

REACTIONS (9)
  - DIZZINESS [None]
  - DYSPEPSIA [None]
  - LABYRINTHITIS [None]
  - MENOPAUSE [None]
  - MENSTRUATION IRREGULAR [None]
  - MYALGIA [None]
  - PAIN IN EXTREMITY [None]
  - VARICOSE VEIN [None]
  - VITAMIN SUPPLEMENTATION [None]
